FAERS Safety Report 7184944-6 (Version None)
Quarter: 2010Q4

REPORT INFORMATION
  Report Type: 
  Country: None (occurrence: None)
  Receive Date: 20101222
  Receipt Date: 20101210
  Transmission Date: 20110411
  Serious: Yes (Death)
  Sender: FDA-Public Use
  Company Number: JP-ABBOTT-10P-087-0689579-00

PATIENT
  Age: 87 Year
  Sex: Male

DRUGS (16)
  1. LEUPROLIDE ACETATE [Suspect]
     Indication: PROSTATE CANCER STAGE IV
     Route: 058
     Dates: start: 20070402, end: 20071001
  2. LEUPROLIDE ACETATE [Suspect]
     Route: 058
     Dates: start: 20080331, end: 20080616
  3. BLOPRESS [Concomitant]
     Indication: HYPERTENSION
     Route: 048
     Dates: end: 20080706
  4. BICALUTAMIDE [Concomitant]
     Indication: PROSTATE CANCER STAGE IV
     Route: 048
     Dates: end: 20070730
  5. BICALUTAMIDE [Concomitant]
     Route: 048
     Dates: start: 20080311, end: 20080428
  6. FLUTAMIDE [Concomitant]
     Indication: PROSTATE CANCER STAGE IV
     Route: 048
     Dates: start: 20071001, end: 20071203
  7. ESTRAMUSTINE PHOSPHATE SODIUM [Concomitant]
     Indication: PROSTATE CANCER STAGE IV
     Route: 048
     Dates: start: 20071203, end: 20080331
  8. ESTRAMUSTINE PHOSPHATE SODIUM [Concomitant]
     Route: 048
     Dates: start: 20080426, end: 20080526
  9. DECADRON [Concomitant]
     Indication: PROSTATE CANCER STAGE IV
     Route: 048
     Dates: start: 20080428, end: 20080706
  10. SELBEX [Concomitant]
     Indication: GASTRITIS
     Route: 048
     Dates: end: 20080706
  11. POLLAKISU [Concomitant]
     Indication: HYPERTONIC BLADDER
     Route: 048
     Dates: end: 20080706
  12. ASPIRIN [Concomitant]
     Indication: CEREBRAL ARTERIOSCLEROSIS
     Route: 048
     Dates: start: 20071203, end: 20080706
  13. MAGLAX [Concomitant]
     Indication: CONSTIPATION
     Route: 048
     Dates: start: 20080121, end: 20080706
  14. LOXONIN [Concomitant]
     Indication: BACK PAIN
     Route: 048
     Dates: start: 20080526, end: 20080706
  15. TOSUXACIN [Concomitant]
     Indication: CYSTITIS
     Route: 048
     Dates: start: 20070402, end: 20070406
  16. GASTER D [Concomitant]
     Indication: GASTRITIS
     Route: 048
     Dates: start: 20070402, end: 20070406

REACTIONS (1)
  - PROSTATE CANCER STAGE IV [None]
